FAERS Safety Report 13913555 (Version 1)
Quarter: 2017Q3

REPORT INFORMATION
  Report Type: Spontaneous
  Country: US (occurrence: None)
  Receive Date: 20170826
  Receipt Date: 20170826
  Transmission Date: 20171127
  Serious: Yes (Hospitalization)
  Sender: FDA-Public Use
  Company Number: None

PATIENT
  Age: 65 Year
  Sex: Female

DRUGS (8)
  1. YUVAFEM [Concomitant]
     Active Substance: ESTRADIOL HEMIHYDRATE
  2. VITAMIN D [Concomitant]
     Active Substance: CHOLECALCIFEROL
  3. FOLIC ACID. [Concomitant]
     Active Substance: FOLIC ACID
  4. SPIRONOLACTONE. [Concomitant]
     Active Substance: SPIRONOLACTONE
  5. TASIGNA [Suspect]
     Active Substance: NILOTINIB
     Indication: LYMPHOCYTOSIS
     Dosage: 2 150MG CAPSULES TWICE DAILY ORALLY
     Route: 048
     Dates: start: 20170802
  6. ATORVASTATIN [Concomitant]
     Active Substance: ATORVASTATIN
  7. ALLOPURINOL. [Concomitant]
     Active Substance: ALLOPURINOL
  8. LOSARTAN. [Concomitant]
     Active Substance: LOSARTAN

REACTIONS (3)
  - Vomiting [None]
  - Dizziness [None]
  - Disease progression [None]

NARRATIVE: CASE EVENT DATE: 201708
